FAERS Safety Report 6548018-7 (Version None)
Quarter: 2010Q1

REPORT INFORMATION
  Report Type: 
  Country: None (occurrence: None)
  Receive Date: 20100124
  Receipt Date: 20091201
  Transmission Date: 20100710
  Serious: Yes (Hospitalization)
  Sender: FDA-Public Use
  Company Number: US-ALEXION-A200901011

PATIENT
  Sex: Female
  Weight: 76.1 kg

DRUGS (12)
  1. SOLIRIS [Suspect]
     Indication: THROMBOTIC MICROANGIOPATHY
     Dosage: 900 MG, WEEKLY
     Route: 042
     Dates: start: 20091023, end: 20091106
  2. COLACE [Concomitant]
  3. FERROUS SULFATE TAB [Concomitant]
  4. GABAPENTIN [Concomitant]
  5. INSULIN [Concomitant]
  6. KEPPRA [Concomitant]
  7. MAG-OX [Concomitant]
  8. NEXIUM [Concomitant]
  9. PHOSLO [Concomitant]
  10. PLAQUENIL [Concomitant]
  11. HYDRALAZINE [Concomitant]
  12. PREDNISONE [Concomitant]

REACTIONS (1)
  - COMPLICATIONS OF TRANSPLANTED KIDNEY [None]
